FAERS Safety Report 7163712-5 (Version None)
Quarter: 2010Q4

REPORT INFORMATION
  Report Type: 
  Country: None (occurrence: None)
  Receive Date: 20101215
  Receipt Date: 20100601
  Transmission Date: 20110411
  Serious: Yes (Other)
  Sender: FDA-Public Use
  Company Number: US-PFIZER INC-2010068515

PATIENT
  Sex: Male
  Weight: 131.52 kg

DRUGS (3)
  1. LYRICA [Suspect]
     Indication: BACK PAIN
     Dosage: 50 MG, UNK
     Dates: start: 20090101
  2. LYRICA [Suspect]
     Dosage: 200 MG, UNK
     Route: 048
     Dates: start: 20090101
  3. LORTAB [Concomitant]
     Dosage: UNK
     Route: 048

REACTIONS (6)
  - BLOOD CHOLESTEROL INCREASED [None]
  - BLOOD TESTOSTERONE DECREASED [None]
  - DEPRESSION [None]
  - HYPERTENSION [None]
  - MENTAL DISORDER [None]
  - SOMNOLENCE [None]
